FAERS Safety Report 5824187-9 (Version None)
Quarter: 2008Q3

REPORT INFORMATION
  Report Type: 
  Country: None (occurrence: None)
  Receive Date: 20080721
  Receipt Date: 20080702
  Transmission Date: 20090109
  Serious: Yes (Hospitalization)
  Sender: FDA-Public Use
  Company Number: 19735

PATIENT
  Age: 83 Year
  Sex: Female

DRUGS (6)
  1. PAMIDRONIC ACID [Suspect]
     Indication: OSTEOPOROSIS
     Dosage: 60 MG IV
     Route: 042
     Dates: start: 20080522
  2. AMITRIPTYLINE HCL [Suspect]
     Indication: PAIN
     Dosage: 10 MG PO
     Route: 048
     Dates: start: 20080521, end: 20080527
  3. DILTIAZEM HCL [Concomitant]
  4. INDPAMIDE [Concomitant]
  5. MST CONTINUS. MFR: NOT SPECIFIED [Concomitant]
  6. PREDNISOLONE [Concomitant]

REACTIONS (1)
  - LIVER FUNCTION TEST ABNORMAL [None]
